FAERS Safety Report 8214825-8 (Version None)
Quarter: 2012Q1

REPORT INFORMATION
  Report Type: 
  Country: None (occurrence: None)
  Receive Date: 20120229
  Receipt Date: 20110722
  Transmission Date: 20120608
  Serious: Yes (Hospitalization)
  Sender: FDA-Public Use
  Company Number: PHHY2011US58062

PATIENT
  Age: 59 Year
  Sex: Female

DRUGS (9)
  1. ANOPRAZOLE [Concomitant]
  2. PREDNISONE TAB [Concomitant]
  3. VITAMIN D [Concomitant]
  4. NEORAL [Suspect]
     Indication: LIVER TRANSPLANT
     Dosage: 200 MG, BID, ORAL
     Route: 048
  5. MYCOSTATIN [Concomitant]
  6. CALCIFEROL (ERGOCALCIFEROL) [Concomitant]
  7. MYCOPHENOLIC ACID [Suspect]
     Dosage: 720M MG, BID, ORAL
     Route: 048
  8. CALCIUM CARBONATE [Concomitant]
  9. PROGRAF [Concomitant]

REACTIONS (2)
  - LIVER TRANSPLANT REJECTION [None]
  - CHEST DISCOMFORT [None]
